FAERS Safety Report 4761672-5 (Version None)
Quarter: 2005Q3

REPORT INFORMATION
  Report Type: 
  Country: None (occurrence: None)
  Receive Date: 20050906
  Receipt Date: 20050901
  Transmission Date: 20060218
  Serious: Yes (Death, Life-Threatening, Hospitalization)
  Sender: FDA-Public Use
  Company Number: IL-SANOFI-SYNTHELABO-F01200501772

PATIENT
  Sex: Male
  Weight: 55 kg

DRUGS (1)
  1. CLOPIDOGREL BISULFATE [Suspect]
     Indication: ACUTE CORONARY SYNDROME
     Dosage: UNK
     Dates: start: 20050816, end: 20050820

REACTIONS (2)
  - ACUTE MYOCARDIAL INFARCTION [None]
  - HYPONATRAEMIA [None]
